FAERS Safety Report 23302730 (Version 1)
Quarter: 2023Q4

REPORT INFORMATION
  Report Type: Spontaneous
  Country: US (occurrence: None)
  Receive Date: 20231215
  Receipt Date: 20231215
  Transmission Date: 20240109
  Serious: Yes (Death)
  Sender: FDA-Public Use
  Company Number: 2023A285191

PATIENT
  Age: 58 Year
  Sex: Male

DRUGS (7)
  1. QUETIAPINE [Suspect]
     Active Substance: QUETIAPINE
  2. LISINOPRIL [Suspect]
     Active Substance: LISINOPRIL
  3. OMEPRAZOLE [Suspect]
     Active Substance: OMEPRAZOLE
  4. GABAPENTIN [Suspect]
     Active Substance: GABAPENTIN
  5. LEVETIRACETAM [Suspect]
     Active Substance: LEVETIRACETAM
  6. ATORVASTATIN [Suspect]
     Active Substance: ATORVASTATIN
  7. ALCOHOL [Suspect]
     Active Substance: ALCOHOL

REACTIONS (2)
  - Toxicity to various agents [Fatal]
  - Completed suicide [Fatal]
